FAERS Safety Report 16647088 (Version 1)
Quarter: 2019Q3

REPORT INFORMATION
  Report Type: Spontaneous
  Country: ES (occurrence: ES)
  Receive Date: 20190730
  Receipt Date: 20190730
  Transmission Date: 20191004
  Serious: Yes (Hospitalization)
  Sender: FDA-Public Use
  Company Number: ES-CHIESI USA, INC.-ES-2019CHI000283

PATIENT

DRUGS (2)
  1. CLEVIPREX [Suspect]
     Active Substance: CLEVIDIPINE
     Dosage: UNK
     Route: 042
     Dates: end: 20190620
  2. CLEVIPREX [Suspect]
     Active Substance: CLEVIDIPINE
     Indication: POSTOPERATIVE HYPERTENSION
     Dosage: 4 ML/HR, UNK
     Route: 042
     Dates: start: 20190618

REACTIONS (1)
  - Tachyphylaxis [Recovered/Resolved]

NARRATIVE: CASE EVENT DATE: 20190618
